FAERS Safety Report 5455091-6 (Version None)
Quarter: 2007Q3

REPORT INFORMATION
  Report Type: 
  Country: None (occurrence: None)
  Receive Date: 20070913
  Receipt Date: 20070913
  Transmission Date: 20080115
  Serious: Yes (Life-Threatening, Hospitalization)
  Sender: FDA-Public Use
  Company Number: None

PATIENT
  Age: 23 Year
  Sex: Female
  Weight: 108.8633 kg

DRUGS (2)
  1. TEGRETOL [Suspect]
     Indication: STEVENS-JOHNSON SYNDROME
     Dosage: 400 BID PO
     Route: 048
  2. TEGRETOL [Suspect]
     Indication: TOXIC EPIDERMAL NECROLYSIS
     Dosage: 400 BID PO
     Route: 048

REACTIONS (2)
  - STEVENS-JOHNSON SYNDROME [None]
  - TOXIC EPIDERMAL NECROLYSIS [None]
